FAERS Safety Report 5543914-1 (Version None)
Quarter: 2007Q4

REPORT INFORMATION
  Report Type: 
  Country: None (occurrence: None)
  Receive Date: 20071210
  Receipt Date: 20061116
  Transmission Date: 20080405
  Serious: No
  Sender: FDA-Public Use
  Company Number: US-AMGEN-KDL198167

PATIENT
  Sex: Female
  Weight: 49.5 kg

DRUGS (6)
  1. ENBREL [Suspect]
     Indication: ANKYLOSING SPONDYLITIS
     Route: 058
     Dates: start: 20061011
  2. UNSPECIFIED ANALGESIC [Concomitant]
  3. ULTRAM [Concomitant]
  4. GLUCOSAMINE [Concomitant]
  5. ZOMIG [Concomitant]
  6. TOPAMAX [Concomitant]

REACTIONS (4)
  - ARTHRALGIA [None]
  - BACK PAIN [None]
  - INJECTION SITE REACTION [None]
  - PYREXIA [None]
